FAERS Safety Report 6285593-4 (Version None)
Quarter: 2009Q3

REPORT INFORMATION
  Report Type: 
  Country: None (occurrence: None)
  Receive Date: 20090727
  Receipt Date: 20090715
  Transmission Date: 20100115
  Serious: Yes (Death, Other)
  Sender: FDA-Public Use
  Company Number: US-TYCO HEALTHCARE/MALLINCKRODT-T200901370

PATIENT
  Sex: Female

DRUGS (26)
  1. OPTIMARK [Suspect]
     Indication: NUCLEAR MAGNETIC RESONANCE IMAGING BRAIN
     Dosage: 15 ML, SINGLE
     Route: 042
     Dates: start: 20050816, end: 20050816
  2. MAGNEVIST [Suspect]
     Indication: NUCLEAR MAGNETIC RESONANCE IMAGING BRAIN
     Dosage: UNK
     Dates: start: 20010425, end: 20010425
  3. MAGNEVIST [Suspect]
     Indication: ANGIOGRAM
     Dosage: UNK
     Dates: start: 20010503, end: 20010503
  4. OMNISCAN [Suspect]
     Indication: VENOGRAM
     Dosage: UNK
     Route: 042
     Dates: start: 20030523, end: 20030523
  5. OMNISCAN [Suspect]
     Indication: FISTULOGRAM
     Dosage: UNK
     Dates: start: 20050901, end: 20050901
  6. OMNISCAN [Suspect]
     Dosage: UNK
     Route: 042
     Dates: start: 20050920, end: 20050920
  7. OMNISCAN [Suspect]
     Dosage: UNK
     Route: 042
     Dates: start: 20031204, end: 20031204
  8. OMNISCAN [Suspect]
  9. AMIDARONE [Concomitant]
     Indication: ATRIAL FIBRILLATION
     Dosage: 200 MG, BID
  10. AMIDARONE [Concomitant]
     Indication: CARDIAC FAILURE CONGESTIVE
  11. IMDUR [Concomitant]
     Indication: ATRIAL FIBRILLATION
  12. IMDUR [Concomitant]
     Indication: CARDIAC FAILURE CONGESTIVE
  13. COREG [Concomitant]
     Indication: ATRIAL FIBRILLATION
  14. COREG [Concomitant]
     Indication: CARDIAC FAILURE CONGESTIVE
  15. ACCUPRIL [Concomitant]
     Indication: HYPERTENSION
     Dosage: 10 MG, QD
  16. COUMADIN [Concomitant]
     Indication: ANTICOAGULANT THERAPY
     Dosage: 2 MG, HS
  17. COUMADIN [Concomitant]
     Indication: CARDIAC FAILURE CONGESTIVE
  18. SIMVASTATIN [Concomitant]
     Indication: BLOOD CHOLESTEROL
     Dosage: 5 MG, UNK
  19. RENAGEL                            /01459901/ [Concomitant]
     Dosage: 8 MG, TID
  20. EPOGEN [Concomitant]
     Indication: ANAEMIA
  21. NEPHROCAPS [Concomitant]
     Indication: RENAL FAILURE
  22. NEPHROCAPS [Concomitant]
     Indication: ANAEMIA
  23. FOLIC ACID [Concomitant]
     Indication: RENAL FAILURE
  24. FOLIC ACID [Concomitant]
     Indication: ANAEMIA
  25. ASPIRIN [Concomitant]
     Indication: ANTICOAGULANT THERAPY
  26. ASPIRIN [Concomitant]
     Indication: CARDIAC FAILURE CONGESTIVE

REACTIONS (2)
  - NEPHROGENIC SYSTEMIC FIBROSIS [None]
  - TACHYCARDIA [None]
